FAERS Safety Report 12492772 (Version 3)
Quarter: 2016Q3

REPORT INFORMATION
  Report Type: Spontaneous
  Country: CA (occurrence: CA)
  Receive Date: 20160623
  Receipt Date: 20160722
  Transmission Date: 20161109
  Serious: Yes (Life-Threatening, Hospitalization)
  Sender: FDA-Public Use
  Company Number: CA-009507513-1606CAN010074

PATIENT
  Age: 19 Year
  Sex: Female

DRUGS (3)
  1. CIPRALEX [Concomitant]
     Active Substance: ESCITALOPRAM OXALATE
     Indication: PRODUCT USED FOR UNKNOWN INDICATION
     Route: 065
  2. TYLENOL [Concomitant]
     Active Substance: ACETAMINOPHEN
     Indication: ANALGESIC THERAPY
     Dosage: UNK, PRN (AS REQUIRED)
     Route: 065
  3. LINESSA 28 [Suspect]
     Active Substance: DESOGESTREL\ETHINYL ESTRADIOL
     Indication: AMENORRHOEA
     Dosage: 1 TABLET, QD (1 IN 1 DAY), STRENGTH: 0.1/0.025 MG; 0.125/0.025 MG, 0.15/0.025 MG
     Route: 048
     Dates: start: 201604, end: 201605

REACTIONS (5)
  - Cystitis [Unknown]
  - Cardiac arrest [Unknown]
  - Pneumonia aspiration [Unknown]
  - Pulmonary embolism [Unknown]
  - Off label use [Unknown]

NARRATIVE: CASE EVENT DATE: 201604
